FAERS Safety Report 9372541 (Version 1)
Quarter: 2013Q2

REPORT INFORMATION
  Report Type: Report from Study
  Country: US (occurrence: US)
  Receive Date: 20130627
  Receipt Date: 20130627
  Transmission Date: 20140414
  Serious: Yes (Death, Hospitalization)
  Sender: FDA-Public Use
  Company Number: US-MYLANLABS-2013S1000858

PATIENT
  Age: 65 Year
  Sex: Male

DRUGS (17)
  1. CLOZAPINE TABLETS [Suspect]
     Dates: start: 20111229, end: 2012
  2. PROMETHAZINE [Concomitant]
     Indication: NAUSEA
  3. LIDOCAINE [Concomitant]
     Indication: ORAL PAIN
  4. LACTULOSE [Concomitant]
  5. VITAMINS [Concomitant]
  6. MIRALAX /00754501/ [Concomitant]
  7. COLACE [Concomitant]
  8. ZOCOR [Concomitant]
  9. FLOMAX /00889901/ [Concomitant]
  10. LEXAPRO [Concomitant]
  11. LISINOPRIL [Concomitant]
  12. METOPROLOL [Concomitant]
  13. GLIPIZIDE [Concomitant]
  14. PRILOSEC [Concomitant]
  15. FLONASE [Concomitant]
  16. ASA [Concomitant]
  17. FOLIC ACID [Concomitant]

REACTIONS (1)
  - Death [Fatal]
